FAERS Safety Report 6858745-X (Version None)
Quarter: 2010Q3

REPORT INFORMATION
  Report Type: 
  Country: None (occurrence: None)
  Receive Date: 20100719
  Receipt Date: 20080213
  Transmission Date: 20110219
  Serious: No
  Sender: FDA-Public Use
  Company Number: US-PFIZER INC-2008015444

PATIENT
  Sex: Male
  Weight: 76.7 kg

DRUGS (2)
  1. CHANTIX [Suspect]
     Indication: SMOKING CESSATION THERAPY
     Dates: start: 20071027, end: 20080128
  2. PRAVASTATIN [Concomitant]
     Dates: start: 20050101

REACTIONS (6)
  - ARTHRALGIA [None]
  - BACK PAIN [None]
  - CRYING [None]
  - DEPRESSION [None]
  - PRURITUS [None]
  - WEIGHT INCREASED [None]
